FAERS Safety Report 7639626-0 (Version None)
Quarter: 2011Q3

REPORT INFORMATION
  Report Type: 
  Country: None (occurrence: None)
  Receive Date: 20110727
  Receipt Date: 20110715
  Transmission Date: 20111222
  Serious: Yes (Hospitalization)
  Sender: FDA-Public Use
  Company Number: UA-UCBSA-033722

PATIENT
  Sex: Male
  Weight: 85 kg

DRUGS (4)
  1. CERTOLIZUMAB PEGOL [Suspect]
     Route: 058
     Dates: start: 20090101
  2. CERTOLIZUMAB PEGOL [Suspect]
     Indication: CROHN'S DISEASE
     Dosage: C87085
     Route: 058
  3. NIMESULIDE [Concomitant]
     Indication: ARTHRALGIA
     Route: 048
     Dates: start: 20110503, end: 20110624
  4. CERTOLIZUMAB PEGOL [Suspect]
     Dosage: AT 0, 2 AND 4 WEEKS
     Route: 058
     Dates: start: 20090223, end: 20090101

REACTIONS (1)
  - TENOSYNOVITIS [None]
